FAERS Safety Report 10254102 (Version 1)
Quarter: 2014Q2

REPORT INFORMATION
  Report Type: Spontaneous
  Country: FR (occurrence: FR)
  Receive Date: 20140623
  Receipt Date: 20140623
  Transmission Date: 20141212
  Serious: Yes (Other)
  Sender: FDA-Public Use
  Company Number: FR-ROCHE-1423009

PATIENT
  Age: 75 Year
  Sex: Female

DRUGS (5)
  1. ROACTEMRA [Suspect]
     Indication: RHEUMATOID ARTHRITIS
     Dosage: SECOND INFUSION ON 25/FEB/2014.
     Route: 041
     Dates: start: 20140128
  2. HYPERIUM [Concomitant]
     Route: 065
  3. HYPERIUM [Concomitant]
     Route: 065
     Dates: start: 20140225
  4. IMOVANE [Concomitant]
     Dosage: HALF TABLET A DAY
     Route: 065
  5. PARACETAMOL [Concomitant]
     Dosage: 2 TO 6 CAPSULES A?DAY
     Route: 065

REACTIONS (4)
  - Pruritus [Recovered/Resolved]
  - Aphthous stomatitis [Recovered/Resolved]
  - Glossitis [Recovered/Resolved]
  - Conjunctivitis [Recovered/Resolved]
